FAERS Safety Report 24785522 (Version 1)
Quarter: 2024Q4

REPORT INFORMATION
  Report Type: Spontaneous
  Country: ES (occurrence: ES)
  Receive Date: 20241228
  Receipt Date: 20241228
  Transmission Date: 20250114
  Serious: Yes (Hospitalization, Other)
  Sender: TEVA
  Company Number: None

PATIENT
  Age: 60 Year
  Sex: Female
  Weight: 80 kg

DRUGS (3)
  1. FENTANYL [Suspect]
     Active Substance: FENTANYL
     Indication: Pain
     Dosage: 1 PATCH. EVERY 72 HOURS;50 MICROGRAMS/H
     Route: 003
     Dates: start: 20241125
  2. FENTANYL [Suspect]
     Active Substance: FENTANYL
     Indication: Pain
     Dosage: 1 PATCH. EVERY 72 HOURS;100 MICROGRAMS/H
     Route: 003
     Dates: start: 20241125
  3. VAXIGRIPTETRA [Suspect]
     Active Substance: INFLUENZA VIRUS VACCINE QUADRIVALENT TYPE A+B
     Indication: Influenza immunisation
     Dosage: 1.0 JER PREC DU
     Route: 030
     Dates: start: 20241128

REACTIONS (3)
  - Myocarditis [Recovering/Resolving]
  - Wrong dose [Recovering/Resolving]
  - Loss of consciousness [Recovering/Resolving]

NARRATIVE: CASE EVENT DATE: 20241129
